FAERS Safety Report 24749414 (Version 1)
Quarter: 2024Q4

REPORT INFORMATION
  Report Type: Report from Study
  Country: CA (occurrence: CA)
  Receive Date: 20241218
  Receipt Date: 20241218
  Transmission Date: 20250114
  Serious: Yes (Hospitalization)
  Sender: REGENERON
  Company Number: CA-BAYER-2024A175836

PATIENT
  Sex: Female

DRUGS (2)
  1. EYLEA [Suspect]
     Active Substance: AFLIBERCEPT
     Indication: Age-related macular degeneration
     Dosage: UNK, SOLUTION FOR INJECTION, 40 MG/ML
     Dates: start: 20241028, end: 20241028
  2. EYLEA [Suspect]
     Active Substance: AFLIBERCEPT
     Dosage: 2 MG BOTH EYES, SOLUTION FOR INJECTION, 40 MG/ML
     Dates: start: 20241120, end: 20241120

REACTIONS (2)
  - Migraine [Unknown]
  - Vomiting [Unknown]

NARRATIVE: CASE EVENT DATE: 20241101
